FAERS Safety Report 8430731-8 (Version None)
Quarter: 2012Q2

REPORT INFORMATION
  Report Type: 
  Country: None (occurrence: None)
  Receive Date: 20120612
  Receipt Date: 20120529
  Transmission Date: 20120825
  Serious: Yes (Other)
  Sender: FDA-Public Use
  Company Number: CO-ROCHE-1074525

PATIENT
  Sex: Female

DRUGS (4)
  1. SYMBICORT [Concomitant]
  2. MONTELUKAST [Concomitant]
  3. ALBUTEROL [Concomitant]
     Dates: start: 20120226
  4. OMALIZUMAB [Suspect]
     Indication: ASTHMA
     Route: 065
     Dates: start: 20120226

REACTIONS (6)
  - APHONIA [None]
  - INFLUENZA [None]
  - BRONCHITIS [None]
  - CHEST DISCOMFORT [None]
  - TACHYCARDIA [None]
  - FATIGUE [None]
